FAERS Safety Report 11164643 (Version 2)
Quarter: 2015Q2

REPORT INFORMATION
  Report Type: Report from Study
  Country: DE (occurrence: DE)
  Receive Date: 20150604
  Receipt Date: 20150618
  Transmission Date: 20150821
  Serious: Yes (Hospitalization, Other)
  Sender: FDA-Public Use
  Company Number: DE-MYLANLABS-2015M1015823

PATIENT

DRUGS (10)
  1. LASIX [Concomitant]
     Active Substance: FUROSEMIDE
     Indication: CARDIAC FAILURE
     Dosage: 25 MG, QD
     Route: 048
     Dates: start: 19990507
  2. LASIX [Concomitant]
     Active Substance: FUROSEMIDE
     Dosage: 7 MG, BID
     Route: 065
     Dates: start: 201206
  3. LANITOP [Concomitant]
     Active Substance: METILDIGOXIN
     Indication: CARDIAC FAILURE
     Dosage: UNK
     Route: 048
     Dates: start: 19990507
  4. ALDACTONE [Concomitant]
     Active Substance: SPIRONOLACTONE
     Dosage: 25 MG, UNK
     Route: 065
     Dates: start: 201206
  5. MARCUMAR [Concomitant]
     Active Substance: PHENPROCOUMON
     Dosage: UNK, QD
     Route: 065
     Dates: start: 201206
  6. METHOTREXATE SODIUM. [Suspect]
     Active Substance: METHOTREXATE SODIUM
     Indication: JUVENILE IDIOPATHIC ARTHRITIS
     Dosage: 7.5 MG, UNK (WEEKLY)
     Route: 065
     Dates: start: 20121114, end: 20150513
  7. ETANERCEPT [Suspect]
     Active Substance: ETANERCEPT
     Indication: JUVENILE IDIOPATHIC ARTHRITIS
     Dosage: 25 MG, UNK (EVERY 6 DAYS)
     Route: 065
     Dates: start: 20120628, end: 20150513
  8. ALDACTONE [Concomitant]
     Active Substance: SPIRONOLACTONE
     Indication: CARDIAC FAILURE
     Dosage: UNK
     Route: 048
     Dates: start: 19990507
  9. LANITOP [Concomitant]
     Active Substance: METILDIGOXIN
     Dosage: 4 GTT, BID
     Route: 065
     Dates: start: 201206
  10. MARCUMAR [Concomitant]
     Active Substance: PHENPROCOUMON
     Indication: CARDIAC FAILURE
     Dosage: UNK
     Route: 048
     Dates: start: 19990507

REACTIONS (3)
  - Febrile infection [Recovered/Resolved]
  - B-cell lymphoma [Not Recovered/Not Resolved]
  - Epstein-Barr virus test positive [Unknown]

NARRATIVE: CASE EVENT DATE: 20150115
